FAERS Safety Report 9155457 (Version 1)
Quarter: 2013Q1

REPORT INFORMATION
  Report Type: Spontaneous
  Country: IE (occurrence: IE)
  Receive Date: 20130311
  Receipt Date: 20130311
  Transmission Date: 20140127
  Serious: Yes (Hospitalization)
  Sender: FDA-Public Use
  Company Number: IE-ASTRAZENECA-2013SE15310

PATIENT
  Age: 7 Month
  Sex: Female

DRUGS (2)
  1. PALIVIZUMAB [Suspect]
     Indication: PREMATURE BABY
     Route: 030
     Dates: start: 20121102
  2. FERINSOL [Concomitant]

REACTIONS (2)
  - Eye infection [Recovered/Resolved]
  - Pertussis [Recovered/Resolved]
